FAERS Safety Report 4550254-6 (Version None)
Quarter: 2005Q1

REPORT INFORMATION
  Report Type: 
  Country: None (occurrence: None)
  Receive Date: 20050107
  Receipt Date: 20041227
  Transmission Date: 20050727
  Serious: Yes (Other)
  Sender: FDA-Public Use
  Company Number: 211162

PATIENT
  Age: 47 Year
  Sex: Male
  Weight: 95.2 kg

DRUGS (1)
  1. AVASTIN [Suspect]
     Indication: COLORECTAL CANCER
     Dosage: 500 MG, Q2W, INTRAVENOUS
     Route: 042
     Dates: start: 20040817

REACTIONS (1)
  - MALIGNANT HYPERTENSION [None]
